FAERS Safety Report 14523942 (Version 1)
Quarter: 2018Q1

REPORT INFORMATION
  Report Type: Spontaneous
  Country: NG (occurrence: NG)
  Receive Date: 20180213
  Receipt Date: 20180213
  Transmission Date: 20180509
  Serious: Yes (Other)
  Sender: FDA-Public Use
  Company Number: NG-ROCHE-2067540

PATIENT
  Age: 41 Year
  Sex: Female

DRUGS (7)
  1. MOGADON [Suspect]
     Active Substance: NITRAZEPAM
     Indication: PAIN
     Route: 065
  2. DIAZEPAM. [Suspect]
     Active Substance: DIAZEPAM
     Indication: PAIN
     Route: 065
  3. TEGRETOL [Suspect]
     Active Substance: CARBAMAZEPINE
     Indication: PAIN
     Route: 065
  4. ARTANE [Suspect]
     Active Substance: TRIHEXYPHENIDYL HYDROCHLORIDE
     Indication: PAIN
     Route: 065
  5. PROMETAZIN [Suspect]
     Active Substance: PROMETHAZINE HYDROCHLORIDE
     Indication: PAIN
     Route: 065
  6. PROMETHAZINE [Suspect]
     Active Substance: PROMETHAZINE\PROMETHAZINE HYDROCHLORIDE
     Indication: PAIN
     Route: 065
  7. PIRITON [Suspect]
     Active Substance: CHLORPHENIRAMINE MALEATE
     Indication: PAIN
     Route: 065

REACTIONS (19)
  - Asthenia [Unknown]
  - Head discomfort [Unknown]
  - Depression [Unknown]
  - Somatic symptom disorder [Unknown]
  - Syncope [Unknown]
  - Anxiety [Unknown]
  - Formication [Unknown]
  - Euphoric mood [Unknown]
  - Gait inability [Unknown]
  - Gait disturbance [Unknown]
  - Asthma [Unknown]
  - Dizziness [Unknown]
  - Somnolence [Unknown]
  - Tongue disorder [Unknown]
  - Unevaluable event [Unknown]
  - Drug abuse [Unknown]
  - Drug dependence [Unknown]
  - Weight increased [Unknown]
  - Snoring [Unknown]
